FAERS Safety Report 10468029 (Version 1)
Quarter: 2014Q3

REPORT INFORMATION
  Report Type: Spontaneous
  Country: FR (occurrence: FR)
  Receive Date: 20140922
  Receipt Date: 20140922
  Transmission Date: 20150326
  Serious: Yes (Hospitalization)
  Sender: FDA-Public Use
  Company Number: FR-TEVA-510351ISR

PATIENT
  Age: 18 Year
  Sex: Female

DRUGS (2)
  1. ORAL CONTRACEPTIVES [Concomitant]
  2. ANTADYS [Suspect]
     Active Substance: FLURBIPROFEN
     Indication: DYSMENORRHOEA
     Dosage: INTAKE ABOUT 3 DAYS AT EACH MENSTRUAL PERIOD
     Route: 048
     Dates: end: 201408

REACTIONS (1)
  - Pancreatitis acute [Recovered/Resolved]

NARRATIVE: CASE EVENT DATE: 20140825
